FAERS Safety Report 18224877 (Version 1)
Quarter: 2020Q3

REPORT INFORMATION
  Report Type: Other
  Country: US (occurrence: US)
  Receive Date: 20200903
  Receipt Date: 20200903
  Transmission Date: 20201103
  Serious: Yes (Death)
  Sender: FDA-Public Use
  Company Number: US-ROCHE-2666547

PATIENT
  Age: 79 Year
  Sex: Male

DRUGS (1)
  1. AVASTIN [Suspect]
     Active Substance: BEVACIZUMAB
     Indication: BLADDER CANCER
     Dosage: INFUSE 7.5MG/KG INTRAVENOUSLY EVERY 14 DAY(S)?ON 22/FEB/2017, 08/MAR/2017, 22/MAR/2017, 10/MAY/2017,
     Route: 042
     Dates: start: 20200714

REACTIONS (4)
  - Off label use [Fatal]
  - Shock haemorrhagic [Fatal]
  - Intentional product use issue [Fatal]
  - Gastrointestinal haemorrhage [Fatal]

NARRATIVE: CASE EVENT DATE: 20200809
